FAERS Safety Report 17565125 (Version 4)
Quarter: 2021Q3

REPORT INFORMATION
  Report Type: Report from Study
  Country: US (occurrence: US)
  Receive Date: 20200320
  Receipt Date: 20210811
  Transmission Date: 20211014
  Serious: Yes (Other)
  Sender: FDA-Public Use
  Company Number: NVSC2020US076972

PATIENT
  Age: 53 Year
  Sex: Female

DRUGS (1)
  1. MAYZENT [Suspect]
     Active Substance: SIPONIMOD
     Indication: MULTIPLE SCLEROSIS
     Dosage: 2 MG/KG, QD
     Route: 048
     Dates: start: 20200124

REACTIONS (7)
  - Urinary incontinence [Not Recovered/Not Resolved]
  - Gait disturbance [Recovered/Resolved]
  - Productive cough [Recovering/Resolving]
  - Asthenia [Recovered/Resolved]
  - Movement disorder [Recovered/Resolved]
  - Lower respiratory tract infection [Recovering/Resolving]
  - Tremor [Not Recovered/Not Resolved]

NARRATIVE: CASE EVENT DATE: 20200309
